FAERS Safety Report 5795655-3 (Version None)
Quarter: 2008Q2

REPORT INFORMATION
  Report Type: 
  Country: None (occurrence: None)
  Receive Date: 20080630
  Receipt Date: 20080619
  Transmission Date: 20081010
  Serious: Yes (Other)
  Sender: FDA-Public Use
  Company Number: US-PFIZER INC-2008052728

PATIENT
  Sex: Female

DRUGS (1)
  1. CHANTIX [Suspect]
     Dates: start: 20070101, end: 20080401

REACTIONS (4)
  - DEPRESSION [None]
  - IMPAIRED WORK ABILITY [None]
  - INSOMNIA [None]
  - SUICIDAL IDEATION [None]
